FAERS Safety Report 14266546 (Version 1)
Quarter: 2017Q4

REPORT INFORMATION
  Report Type: Spontaneous
  Country: FR (occurrence: FR)
  Receive Date: 20171211
  Receipt Date: 20171211
  Transmission Date: 20180321
  Serious: Yes (Other)
  Sender: FDA-Public Use
  Company Number: FR-MERCK KGAA-2036971

PATIENT
  Age: 48 Year
  Sex: Female

DRUGS (1)
  1. NOVOTHYROX [Suspect]
     Active Substance: LEVOTHYROXINE SODIUM
     Indication: HYPOTHYROIDISM
     Dates: start: 201706

REACTIONS (18)
  - Sense of oppression [None]
  - Weight increased [None]
  - Malaise [None]
  - Heart rate increased [None]
  - Headache [None]
  - Tachycardia [None]
  - Feeling abnormal [None]
  - Anxiety [None]
  - Nervousness [None]
  - Fatigue [None]
  - Mood swings [None]
  - Discomfort [None]
  - Crying [None]
  - Visual impairment [None]
  - Personal relationship issue [None]
  - Palpitations [None]
  - Muscle spasms [None]
  - Depressed mood [None]

NARRATIVE: CASE EVENT DATE: 2017
